FAERS Safety Report 16793268 (Version 1)
Quarter: 2019Q3

REPORT INFORMATION
  Report Type: Spontaneous
  Country: US (occurrence: US)
  Receive Date: 20190911
  Receipt Date: 20190911
  Transmission Date: 20191005
  Serious: Yes (Other)
  Sender: FDA-Public Use
  Company Number: US-ROCHE-2355291

PATIENT
  Sex: Female
  Weight: 70.37 kg

DRUGS (1)
  1. OCREVUS [Suspect]
     Active Substance: OCRELIZUMAB
     Indication: RELAPSING-REMITTING MULTIPLE SCLEROSIS
     Dosage: ONGOING
     Route: 042
     Dates: start: 20180219, end: 201903

REACTIONS (2)
  - Pregnancy [Unknown]
  - Multiple sclerosis [Unknown]
